FAERS Safety Report 6836915-4 (Version None)
Quarter: 2010Q3

REPORT INFORMATION
  Report Type: 
  Country: None (occurrence: None)
  Receive Date: 20100713
  Receipt Date: 20070426
  Transmission Date: 20110219
  Serious: No
  Sender: FDA-Public Use
  Company Number: US-PFIZER INC-2007034959

PATIENT
  Sex: Male
  Weight: 93.636 kg

DRUGS (9)
  1. CHANTIX [Suspect]
     Indication: SMOKING CESSATION THERAPY
     Dates: start: 20070417
  2. ATENOLOL [Concomitant]
  3. ALPRAZOLAM [Concomitant]
  4. METFORMIN HYDROCHLORIDE/ROSIGLITAZONE [Concomitant]
  5. VYTORIN [Concomitant]
  6. ISOSORBIDE [Concomitant]
  7. CILOSTAZOL [Concomitant]
  8. LISINOPRIL [Concomitant]
  9. ACETYLSALICYLIC ACID [Concomitant]

REACTIONS (3)
  - ABDOMINAL PAIN UPPER [None]
  - HEADACHE [None]
  - MALAISE [None]
